FAERS Safety Report 5134373-1 (Version None)
Quarter: 2006Q4

REPORT INFORMATION
  Report Type: 
  Country: None (occurrence: None)
  Receive Date: 20061019
  Receipt Date: 20061005
  Transmission Date: 20070319
  Serious: Yes (Death)
  Sender: FDA-Public Use
  Company Number: S06-USA-04266-01

PATIENT
  Age: 17 Year
  Sex: Male

DRUGS (1)
  1. LEXAPRO [Suspect]
     Indication: ANXIETY
     Dosage: 10 MG PO
     Route: 048
     Dates: start: 20040401, end: 20040601

REACTIONS (8)
  - AGITATION [None]
  - ANXIETY [None]
  - COMPLETED SUICIDE [None]
  - CONDITION AGGRAVATED [None]
  - DEPRESSED MOOD [None]
  - GUN SHOT WOUND [None]
  - HOSTILITY [None]
  - SUICIDAL IDEATION [None]
